FAERS Safety Report 5971688-9 (Version None)
Quarter: 2008Q4

REPORT INFORMATION
  Report Type: 
  Country: None (occurrence: None)
  Receive Date: 20081201
  Receipt Date: 20081120
  Transmission Date: 20090506
  Serious: Yes (Other)
  Sender: FDA-Public Use
  Company Number: JP-BAYER-200812833BYL

PATIENT
  Age: 75 Year
  Sex: Male

DRUGS (5)
  1. ADALAT CC [Suspect]
     Indication: HYPERTENSION
     Dosage: TOTAL DAILY DOSE: 40 MG  UNIT DOSE: 20 MG
     Route: 048
     Dates: end: 20081118
  2. FAMOTIDINE [Suspect]
     Indication: DRUG USE FOR UNKNOWN INDICATION
     Route: 048
  3. LENDORMIN D [Concomitant]
     Dosage: TOTAL DAILY DOSE: 1 DF
     Route: 048
  4. JU-KAMA [Concomitant]
     Dosage: TOTAL DAILY DOSE: 3 G
     Route: 048
  5. PURSENNID [Concomitant]
     Route: 048

REACTIONS (1)
  - NEUTROPENIA [None]
